FAERS Safety Report 9511030 (Version 1)
Quarter: 2013Q1

REPORT INFORMATION
  Report Type: Spontaneous
  Country: US (occurrence: None)
  Receive Date: 20130305
  Receipt Date: 20130305
  Transmission Date: 20140127
  Serious: Yes (Hospitalization)
  Sender: FDA-Public Use
  Company Number: 163-21880-11072562

PATIENT
  Age: 75 Year
  Sex: Female
  Weight: 52.21 kg

DRUGS (5)
  1. REVLIMID [Suspect]
     Indication: PLASMA CELL MYELOMA
     Dosage: 10 MG, 1 IN 1 D, PO
     Route: 048
     Dates: start: 20110622
  2. NEURONTIN (GABAPENTIN) (UNKNOWN) [Concomitant]
  3. DECADRON (DEXAMETHASONE) (TABLETS) [Concomitant]
  4. IVIG (IMMUNOGLOBULIN) (UNKNOWN) [Concomitant]
  5. XANAX (ALPRAZOLAM) (UNKNOWN) [Concomitant]

REACTIONS (4)
  - Herpes zoster [None]
  - Dysphonia [None]
  - Blood pressure increased [None]
  - Full blood count decreased [None]
